FAERS Safety Report 9027168 (Version 1)
Quarter: 2013Q1

REPORT INFORMATION
  Report Type: Spontaneous
  Country: MX (occurrence: MX)
  Receive Date: 20130123
  Receipt Date: 20130123
  Transmission Date: 20140127
  Serious: Yes (Death)
  Sender: FDA-Public Use
  Company Number: MX-GLAXOSMITHKLINE-A1009369A

PATIENT
  Sex: Female
  Weight: 90 kg

DRUGS (4)
  1. SERETIDE [Suspect]
     Indication: CARDIAC FAILURE
     Dosage: 6PUFF PER DAY
     Route: 055
  2. LASILACTON [Concomitant]
     Indication: CARDIAC FAILURE
     Route: 065
  3. REVATIO [Concomitant]
     Indication: CARDIAC FAILURE
     Route: 065
  4. LANOXIN [Concomitant]
     Indication: CARDIAC FAILURE
     Route: 065

REACTIONS (1)
  - Death [Fatal]
